FAERS Safety Report 4649648-X (Version None)
Quarter: 2005Q2

REPORT INFORMATION
  Report Type: 
  Country: None (occurrence: None)
  Receive Date: 20050502
  Receipt Date: 20050404
  Transmission Date: 20051028
  Serious: Yes (Death)
  Sender: FDA-Public Use
  Company Number: DE-BRISTOL-MYERS SQUIBB COMPANY-12919106

PATIENT
  Age: 81 Year
  Sex: Male

DRUGS (15)
  1. BLEOMYCIN SULFATE [Suspect]
     Indication: SKIN CANCER
     Dosage: DOSE:  40 UNITS
     Dates: start: 20050210, end: 20050210
  2. ISOTRETINOIN [Concomitant]
  3. CORANGIN [Concomitant]
     Route: 048
  4. ALLOPURINOL [Concomitant]
     Route: 048
  5. TAMSULOSIN [Concomitant]
     Route: 048
  6. ENALAPRIL [Concomitant]
     Route: 048
  7. NORVASC [Concomitant]
     Route: 048
  8. HEPARIN [Concomitant]
     Route: 042
  9. PHENPROCOUMON [Concomitant]
     Route: 042
     Dates: start: 20050201
  10. TRAMADOL HCL [Concomitant]
     Dates: start: 20050210, end: 20050210
  11. PROPOFOL [Concomitant]
  12. ROCURONIUM BROMIDE [Concomitant]
     Dates: start: 20050210, end: 20050210
  13. REMIFENTANIL HCL [Concomitant]
     Dates: start: 20050210, end: 20050210
  14. PIRITRAMIDE [Concomitant]
     Dates: start: 20050210, end: 20050210
  15. AKRINOR [Concomitant]
     Dates: start: 20050210, end: 20050210

REACTIONS (1)
  - CARDIAC FAILURE [None]
